FAERS Safety Report 5297796-6 (Version None)
Quarter: 2007Q2

REPORT INFORMATION
  Report Type: 
  Country: None (occurrence: None)
  Receive Date: 20070416
  Receipt Date: 20070405
  Transmission Date: 20071010
  Serious: Yes (Hospitalization, Other)
  Sender: FDA-Public Use
  Company Number: PHEH2007US04322

PATIENT
  Age: 81 Year

DRUGS (7)
  1. ZELNORM [Suspect]
     Indication: IRRITABLE BOWEL SYNDROME
     Dosage: 6 MG, BID
     Route: 048
     Dates: start: 20030101
  2. ATENOLOL [Concomitant]
  3. LISINOPRIL [Concomitant]
  4. NORVASC [Concomitant]
  5. PROTONIX [Concomitant]
  6. CRESTOR [Concomitant]
  7. AMBIEN [Concomitant]

REACTIONS (2)
  - DYSPNOEA [None]
  - MYOCARDITIS [None]
